FAERS Safety Report 4889570-7 (Version None)
Quarter: 2006Q1

REPORT INFORMATION
  Report Type: 
  Country: None (occurrence: None)
  Receive Date: 20060120
  Receipt Date: 20060109
  Transmission Date: 20060701
  Serious: Yes (Death, Life-Threatening, Disabling)
  Sender: FDA-Public Use
  Company Number: 2004102863

PATIENT
  Age: 59 Year
  Sex: Male

DRUGS (1)
  1. SORTIS (ATORVASTATIN) [Suspect]
     Indication: HYPERCHOLESTEROLAEMIA
     Dosage: 20 MG (20 MG, 1IN 1 D), ORAL
     Route: 048
     Dates: start: 20020101, end: 20041122

REACTIONS (3)
  - AMYOTROPHIC LATERAL SCLEROSIS [None]
  - DEMYELINATING POLYNEUROPATHY [None]
  - MONOPARESIS [None]
